FAERS Safety Report 6832264-9 (Version None)
Quarter: 2010Q3

REPORT INFORMATION
  Report Type: 
  Country: None (occurrence: None)
  Receive Date: 20100712
  Receipt Date: 20100629
  Transmission Date: 20110219
  Serious: Yes (Other)
  Sender: FDA-Public Use
  Company Number: CO-GENZYME-FABR-1001408

PATIENT
  Age: 37 Year
  Sex: Male
  Weight: 84 kg

DRUGS (2)
  1. FABRAZYME [Suspect]
     Indication: FABRY'S DISEASE
     Dosage: 1.5 MG/KG, Q2W
     Route: 042
     Dates: start: 20100101
  2. FABRAZYME [Suspect]
     Dosage: UNK
     Dates: start: 20060908

REACTIONS (6)
  - CHEST DISCOMFORT [None]
  - CHILLS [None]
  - HYPERAESTHESIA [None]
  - PARAESTHESIA [None]
  - PYREXIA [None]
  - RESPIRATORY DISORDER [None]
